FAERS Safety Report 6595719-0 (Version None)
Quarter: 2010Q1

REPORT INFORMATION
  Report Type: 
  Country: None (occurrence: None)
  Receive Date: 20100223
  Receipt Date: 20100215
  Transmission Date: 20100710
  Serious: Yes (Hospitalization)
  Sender: FDA-Public Use
  Company Number: US-JNJFOC-20100205655

PATIENT
  Sex: Female
  Weight: 57.15 kg

DRUGS (7)
  1. INFLIXIMAB [Suspect]
     Indication: INFLAMMATORY BOWEL DISEASE
     Route: 042
  2. CLONAZEPAM [Concomitant]
     Dosage: 0.25 MG Q AM AND 0.5 MG Q PM
     Route: 048
  3. NEURONTIN [Concomitant]
  4. AMITIZA [Concomitant]
     Dosage: 8 MCG BID
  5. ERYTHROMYCIN [Concomitant]
  6. PREDNISONE [Concomitant]
  7. PROTONIX [Concomitant]

REACTIONS (1)
  - IMPAIRED GASTRIC EMPTYING [None]
